FAERS Safety Report 7993139-5 (Version None)
Quarter: 2011Q4

REPORT INFORMATION
  Report Type: 
  Country: None (occurrence: None)
  Receive Date: 20111219
  Receipt Date: 20110119
  Transmission Date: 20120403
  Serious: No
  Sender: FDA-Public Use
  Company Number: US-ASTRAZENECA-2011SE03508

PATIENT
  Age: 54 Year
  Sex: Female
  Weight: 59 kg

DRUGS (1)
  1. CRESTOR [Suspect]
     Indication: BLOOD TRIGLYCERIDES INCREASED
     Route: 048
     Dates: start: 20100901

REACTIONS (7)
  - DRUG DOSE OMISSION [None]
  - EAR DISCOMFORT [None]
  - INSOMNIA [None]
  - HEPATIC ENZYME INCREASED [None]
  - CHILLS [None]
  - NASOPHARYNGITIS [None]
  - FATIGUE [None]
